FAERS Safety Report 9181472 (Version 1)
Quarter: 2013Q1

REPORT INFORMATION
  Report Type: Spontaneous
  Country: US (occurrence: US)
  Receive Date: 20130322
  Receipt Date: 20130322
  Transmission Date: 20140127
  Serious: No
  Sender: FDA-Public Use
  Company Number: US-PFIZER INC-2013088416

PATIENT
  Sex: 0

DRUGS (1)
  1. ADVIL [Suspect]
     Dosage: UNK
     Dates: end: 201303

REACTIONS (2)
  - Malaise [Unknown]
  - Abdominal discomfort [Unknown]
